FAERS Safety Report 5262986-5 (Version None)
Quarter: 2007Q1

REPORT INFORMATION
  Report Type: 
  Country: None (occurrence: None)
  Receive Date: 20061219
  Receipt Date: 20060825
  Transmission Date: 20070707
  Serious: No
  Sender: FDA-Public Use
  Company Number: 2006US001714

PATIENT
  Age: 75 Year
  Sex: Female

DRUGS (13)
  1. VESICARE [Suspect]
     Indication: DRUG USE FOR UNKNOWN INDICATION
     Dosage: 5 MG, UID/QD, ORAL
     Route: 048
     Dates: start: 20060821
  2. METFORMIN (METFORMIN HYDROCHLORIDE) [Concomitant]
  3. PACERONE [Concomitant]
  4. QUINAPRIL HCL [Concomitant]
  5. NORVASC [Concomitant]
  6. TOPROL-XL [Concomitant]
  7. LOVASTATIN [Concomitant]
  8. WARFARIN SODIUM [Concomitant]
  9. RANITIDINE HCL [Concomitant]
  10. ALPRAZOLAM [Concomitant]
  11. MULTIVITAMIN [Concomitant]
  12. CALCIUM (ASCORBIC ACID) [Concomitant]
  13. VITAMIN E (HERBAL OIL NOS) [Concomitant]

REACTIONS (1)
  - DRY MOUTH [None]
